FAERS Safety Report 7877337-7 (Version None)
Quarter: 2011Q4

REPORT INFORMATION
  Report Type: 
  Country: None (occurrence: None)
  Receive Date: 20111031
  Receipt Date: 20111024
  Transmission Date: 20120403
  Serious: Yes (Hospitalization)
  Sender: FDA-Public Use
  Company Number: IT-BRISTOL-MYERS SQUIBB COMPANY-16196644

PATIENT
  Age: 81 Year
  Sex: Male

DRUGS (7)
  1. MINITRAN [Concomitant]
  2. RAMIPRIL [Concomitant]
  3. TIMOLOL MALEATE [Concomitant]
     Dosage: TIMOLOL EYE DROPS.
  4. COUMADIN [Suspect]
     Indication: PULMONARY EMBOLISM
     Dosage: 1DF: 1UNIT.DRUG INTERRUPTED ON 19OCT2011
     Route: 048
     Dates: start: 20110921
  5. CARVEDILOL [Concomitant]
  6. SEACOR [Concomitant]
  7. LASIX [Concomitant]
     Dosage: 1DF: 2 UNITS
     Route: 048

REACTIONS (2)
  - CEREBRAL HAEMATOMA [None]
  - EPILEPSY [None]
